FAERS Safety Report 25055165 (Version 1)
Quarter: 2025Q1

REPORT INFORMATION
  Report Type: Report from Study
  Country: US (occurrence: US)
  Receive Date: 20250308
  Receipt Date: 20250308
  Transmission Date: 20250409
  Serious: Yes (Other)
  Sender: ABBVIE
  Company Number: US-ABBVIE-6160846

PATIENT
  Age: 82 Year
  Sex: Male

DRUGS (1)
  1. IMBRUVICA [Suspect]
     Active Substance: IBRUTINIB
     Indication: Chronic lymphocytic leukaemia
     Dosage: 140 MG , THREE PER DAY
     Route: 048
     Dates: start: 202402

REACTIONS (7)
  - Arthropathy [Unknown]
  - Chest pain [Unknown]
  - Anxiety [Unknown]
  - Loss of personal independence in daily activities [Unknown]
  - White blood cell count increased [Unknown]
  - Dementia Alzheimer^s type [Unknown]
  - Lymphoma [Unknown]

NARRATIVE: CASE EVENT DATE: 20240901
